FAERS Safety Report 6282716-8 (Version None)
Quarter: 2009Q3

REPORT INFORMATION
  Report Type: 
  Country: None (occurrence: None)
  Receive Date: 20090724
  Receipt Date: 20090713
  Transmission Date: 20100115
  Serious: Yes (Other)
  Sender: FDA-Public Use
  Company Number: US-ELI_LILLY_AND_COMPANY-US200907003481

PATIENT
  Age: 52 Year
  Sex: Female

DRUGS (5)
  1. CYMBALTA [Suspect]
     Indication: DIABETIC NEUROPATHY
     Dosage: 30 MG, UNK
     Dates: start: 20080201
  2. CYMBALTA [Suspect]
     Dosage: 60 MG, DAILY (1/D)
     Dates: end: 20090701
  3. CYMBALTA [Suspect]
     Dosage: 60 MG, QOD
     Dates: start: 20090701, end: 20090701
  4. HUMALOG [Concomitant]
     Dosage: 15 U, 3/D
  5. LANTUS [Concomitant]
     Dosage: 65 U, UNK

REACTIONS (3)
  - COLON CANCER [None]
  - NAUSEA [None]
  - VOMITING [None]
